FAERS Safety Report 6427455-5 (Version None)
Quarter: 2009Q4

REPORT INFORMATION
  Report Type: 
  Country: None (occurrence: None)
  Receive Date: 20091104
  Receipt Date: 20091030
  Transmission Date: 20100525
  Serious: Yes (Hospitalization)
  Sender: FDA-Public Use
  Company Number: ES-B.I. PHARMACEUTICALS,INC./RIDGEFIELD-2009-BP-12752YA

PATIENT
  Age: 64 Year
  Sex: Male

DRUGS (3)
  1. OMNIC CAPSULES [Suspect]
     Indication: BENIGN PROSTATIC HYPERPLASIA
     Dosage: 0.1 MG
     Route: 048
     Dates: start: 20070101, end: 20090707
  2. LISINOPRIL [Suspect]
     Indication: HYPERTENSION
     Dosage: 20 MG
     Route: 048
     Dates: start: 20070101, end: 20090707
  3. EQUISETUM ARVENSE [Suspect]
     Indication: HYPERTENSION

REACTIONS (1)
  - RENAL FAILURE ACUTE [None]
